FAERS Safety Report 5747459-5 (Version None)
Quarter: 2008Q2

REPORT INFORMATION
  Report Type: 
  Country: None (occurrence: None)
  Receive Date: 20080523
  Receipt Date: 20080512
  Transmission Date: 20081010
  Serious: Yes (Hospitalization, Other)
  Sender: FDA-Public Use
  Company Number: US-BAYER-200713454BCC

PATIENT
  Age: 70 Year
  Sex: Female
  Weight: 63 kg

DRUGS (21)
  1. ASPIRIN [Suspect]
     Indication: PULMONARY ARTERIAL HYPERTENSION
     Dosage: UNIT DOSE: 81 MG
     Route: 048
     Dates: start: 20070823, end: 20071012
  2. SIMVASTATIN [Suspect]
     Indication: PULMONARY ARTERIAL HYPERTENSION
     Dosage: UNIT DOSE: 40 MG
     Route: 048
     Dates: start: 20070823
  3. FLOLAN [Concomitant]
  4. DIGOXIN [Concomitant]
  5. SPIRONOLACTONE [Concomitant]
  6. TORSEMIDE [Concomitant]
  7. WARFARIN SODIUM [Concomitant]
  8. VITAMIN D [Concomitant]
  9. POTASSIUM CHLORIDE [Concomitant]
  10. RABEPRAZOLE SODIUM [Concomitant]
  11. FOLATE [Concomitant]
  12. ACETAMINOPHEN [Concomitant]
  13. LEVOTHYROXINE SODIUM [Concomitant]
  14. VITAMIN B [Concomitant]
  15. MYLANTA [Concomitant]
  16. VITAMIN CAP [Concomitant]
     Route: 048
  17. LEVOTHYROXINE SODIUM [Concomitant]
  18. METOCLOPROMIDE [Concomitant]
  19. CYANOCOBALAMIN [Concomitant]
  20. CALCITRIOL [Concomitant]
  21. SENNA [Concomitant]

REACTIONS (8)
  - ABDOMINAL DISTENSION [None]
  - ABDOMINAL PAIN [None]
  - ATRIAL FIBRILLATION [None]
  - BLOOD CREATININE INCREASED [None]
  - BLOOD UREA INCREASED [None]
  - DYSPNOEA AT REST [None]
  - RENAL INJURY [None]
  - RIGHT VENTRICULAR FAILURE [None]
